FAERS Safety Report 10460355 (Version 2)
Quarter: 2015Q3

REPORT INFORMATION
  Report Type: Spontaneous
  Country: US (occurrence: US)
  Receive Date: 20140917
  Receipt Date: 20150929
  Transmission Date: 20151125
  Serious: No
  Sender: FDA-Public Use
  Company Number: US-ASTRAZENECA-2013SE93501

PATIENT
  Age: 42 Year
  Sex: Female

DRUGS (23)
  1. HYDROCODONE BITARTRATE AND ACETAMINOPHEN [Concomitant]
     Active Substance: ACETAMINOPHEN\HYDROCODONE BITARTRATE
     Indication: PAIN
     Dosage: 1/2 TAB TO 1 TAB AS NEEDED ORALLY 1 TWICE DAILY
     Route: 048
  2. TIZANIDINE. [Concomitant]
     Active Substance: TIZANIDINE
     Indication: MUSCLE SPASMS
     Dosage: 1 TABLET AS NEEDED ORALLY AT BEDTIME
     Route: 048
  3. NORVASC [Concomitant]
     Active Substance: AMLODIPINE BESYLATE
  4. LYRICA [Concomitant]
     Active Substance: PREGABALIN
     Indication: PAIN
     Dosage: 1 CAPSULE ONCE A DAY, MAY INCREASE TO TWICE DAILY
  5. CYMBALTA [Concomitant]
     Active Substance: DULOXETINE HYDROCHLORIDE
     Indication: NEURALGIA
     Dosage: 1 CAPSULE ORALLY ONCE A DAY IN AM
     Route: 048
  6. POTASSIUM CHLORIDE. [Concomitant]
     Active Substance: POTASSIUM CHLORIDE
     Route: 048
  7. LOVAZA [Concomitant]
     Active Substance: OMEGA-3-ACID ETHYL ESTERS
     Dosage: 1 CAPSULE TWICE DALLY X 2 WEEKS, THEN INCREASE TO 2 CAP.O;;ULE TWICE DIAY- CHOLESTEROL,
     Route: 048
  8. VITAMIN D3 [Concomitant]
     Active Substance: CHOLECALCIFEROL
     Dosage: 2 TABS IN AM, 1 TAB IN PM, ORALLY ONCE A DAY OR 5000 UNIT ONE TAB PO DAILY
     Route: 048
  9. LOSARTAN POTASSIUM. [Concomitant]
     Active Substance: LOSARTAN POTASSIUM
     Indication: BLOOD PRESSURE ABNORMAL
     Dosage: 1/2 TAB ORALLY ONCE A DAY IN PM
     Route: 048
  10. CELEBREX [Concomitant]
     Active Substance: CELECOXIB
  11. LIPITOR [Concomitant]
     Active Substance: ATORVASTATIN CALCIUM
  12. CLARITIN [Concomitant]
     Active Substance: LORATADINE
     Route: 048
  13. KLONOPIN [Concomitant]
     Active Substance: CLONAZEPAM
     Indication: NEURALGIA
     Dosage: 1 TABLET ONCE ORALLY ONCE A DAY AT LOPM
     Route: 048
  14. FAMOTIDINE. [Concomitant]
     Active Substance: FAMOTIDINE
     Dosage: 1 TABLET ORALLY TWICE A DAY(WITH LUNCH AND AT BEDTIME)
     Route: 048
  15. KLONOPIN [Concomitant]
     Active Substance: CLONAZEPAM
     Indication: RESTLESSNESS
     Dosage: 1 TABLET ONCE ORALLY ONCE A DAY AT LOPM
     Route: 048
  16. KEFLEX [Concomitant]
     Active Substance: CEPHALEXIN
     Dosage: 1 CAPSULE ORALLY TWICE A DAY UNTIL COMPLETE
     Route: 048
  17. HYDROCHLOROTHIAZIDE. [Concomitant]
     Active Substance: HYDROCHLOROTHIAZIDE
     Indication: BLOOD PRESSURE ABNORMAL
     Route: 048
  18. ZESTRIL [Suspect]
     Active Substance: LISINOPRIL
     Route: 048
  19. NEURONTIN [Concomitant]
     Active Substance: GABAPENTIN
     Dosage: 1 CAPSULE ORALLY WITH LAST MEAL FOR DAYS, THEN INCREASE TO 3 CAPSULE WITH LAST MEAL UNTIL COMPLETE
     Route: 048
  20. ELAVIL [Concomitant]
     Active Substance: AMITRIPTYLINE HYDROCHLORIDE
  21. VYTORIN [Concomitant]
     Active Substance: EZETIMIBE\SIMVASTATIN
  22. MULTIVITAMINS [Concomitant]
     Active Substance: VITAMINS
     Dosage: 1 TABLET ORALLY ONCE A DAY
     Route: 048
  23. CORICIDIN [Concomitant]
     Active Substance: ACETAMINOPHEN\CHLORPHENIRAMINE MALEATE
     Indication: COUGH
     Dosage: 1 TABLET AS NEEDED ORALLY TWICE DAILY
     Route: 048

REACTIONS (11)
  - Neuralgia [Unknown]
  - Blood cholesterol increased [Unknown]
  - Depression [Unknown]
  - Cough [Unknown]
  - Anxiety [Unknown]
  - Neuropathy peripheral [Unknown]
  - Diabetes mellitus [Unknown]
  - Drug hypersensitivity [Unknown]
  - Hypertension [Unknown]
  - Hyperlipidaemia [Unknown]
  - Muscle spasms [Unknown]
